FAERS Safety Report 11726858 (Version 2)
Quarter: 2015Q4

REPORT INFORMATION
  Report Type: Spontaneous
  Country: US (occurrence: US)
  Receive Date: 20151112
  Receipt Date: 20151117
  Transmission Date: 20160304
  Serious: Yes (Hospitalization)
  Sender: FDA-Public Use
  Company Number: US-ROCHE-1660069

PATIENT
  Age: 59 Year
  Sex: Female
  Weight: 124.85 kg

DRUGS (27)
  1. CYMBALTA [Concomitant]
     Active Substance: DULOXETINE HYDROCHLORIDE
     Route: 065
  2. EPIPEN [Concomitant]
     Active Substance: EPINEPHRINE
     Dosage: 0.3MG/0.3 ML, USE AS DIRECTED FOR SEVERE ALLERGIC REACTIONS AND LIFE THREATNING SWELLING OF YOUR AIR
     Route: 065
  3. FLUTICASONE [Concomitant]
     Active Substance: FLUTICASONE\FLUTICASONE PROPIONATE
     Dosage: 2 SPRAYS EACH NOSTRIL ONCE A DAY
     Route: 065
  4. LASIX [Concomitant]
     Active Substance: FUROSEMIDE
     Dosage: TAKE 1 DAILY AS PREVIOUSLY INSTRUCTED
     Route: 065
  5. ALBUTEROL. [Concomitant]
     Active Substance: ALBUTEROL
     Indication: DYSPNOEA
  6. PROAIR HFA [Concomitant]
     Active Substance: ALBUTEROL SULFATE
     Dosage: 2 PUFFS EVERY 4 HOUR AS NEEDED
     Route: 065
  7. TRENTAL [Concomitant]
     Active Substance: PENTOXIFYLLINE
     Route: 065
  8. AVAPRO [Concomitant]
     Active Substance: IRBESARTAN
     Route: 065
  9. CUTIVATE [Concomitant]
     Active Substance: FLUTICASONE PROPIONATE
     Route: 065
  10. FENOFIBRATE. [Concomitant]
     Active Substance: FENOFIBRATE
     Route: 065
  11. MONTELUKAST SODIUM. [Concomitant]
     Active Substance: MONTELUKAST SODIUM
     Dosage: 1 TABLET AT BEDTIME
     Route: 065
  12. NEURONTIN [Concomitant]
     Active Substance: GABAPENTIN
     Route: 065
  13. HYDRALAZINE [Concomitant]
     Active Substance: HYDRALAZINE HYDROCHLORIDE
     Route: 065
  14. XARELTO [Concomitant]
     Active Substance: RIVAROXABAN
     Route: 065
  15. LANTUS SOLOSTAR [Concomitant]
     Active Substance: INSULIN GLARGINE
     Route: 065
  16. NOVOLOG [Concomitant]
     Active Substance: INSULIN ASPART
  17. FLOMAX (UNITED STATES) [Concomitant]
     Route: 065
  18. LIPITOR [Concomitant]
     Active Substance: ATORVASTATIN CALCIUM
     Route: 065
  19. CLONIDINE HCL [Concomitant]
     Active Substance: CLONIDINE HYDROCHLORIDE
     Route: 065
  20. PREDNISONE. [Concomitant]
     Active Substance: PREDNISONE
     Dosage: TAKE 2 PILLS DAILY FOR 5 DAYS, THEN 1 PILL DAILY FOR 5 DAYS, THEN 1/2 PILL DAILY FOR 5 DAYS
     Route: 065
  21. VIAGRA [Concomitant]
     Active Substance: SILDENAFIL CITRATE
     Route: 065
  22. XOLAIR [Suspect]
     Active Substance: OMALIZUMAB
     Indication: ASTHMA
     Route: 058
     Dates: start: 20150224
  23. ADVAIR DISKUS [Concomitant]
     Active Substance: FLUTICASONE PROPIONATE\SALMETEROL XINAFOATE
  24. ALBUTEROL. [Concomitant]
     Active Substance: ALBUTEROL
     Indication: COUGH
     Dosage: USE 1 NEBULISER EVERY 6 HOURS AS NEEDED FOR COUGH, SHORTNESS OF BREATH
     Route: 065
  25. BYETTA [Concomitant]
     Active Substance: EXENATIDE
     Dosage: 250 MCG/ML
     Route: 065
  26. NORVASC [Concomitant]
     Active Substance: AMLODIPINE BESYLATE
  27. SPIRIVA [Concomitant]
     Active Substance: TIOTROPIUM BROMIDE MONOHYDRATE
     Dosage: I INHALATION ONCE DAILY
     Route: 065

REACTIONS (1)
  - Ischaemic stroke [Recovering/Resolving]

NARRATIVE: CASE EVENT DATE: 20151023
